FAERS Safety Report 21643497 (Version 1)
Quarter: 2022Q4

REPORT INFORMATION
  Report Type: Report from Study
  Country: US (occurrence: US)
  Receive Date: 20221125
  Receipt Date: 20221125
  Transmission Date: 20230113
  Serious: Yes (Other)
  Sender: FDA-Public Use
  Company Number: US-ABBVIE-4214110

PATIENT

DRUGS (1)
  1. HUMIRA [Suspect]
     Active Substance: ADALIMUMAB
     Indication: Crohn^s disease
     Route: 058

REACTIONS (6)
  - Hysterotomy [Unknown]
  - Bowel movement irregularity [Unknown]
  - Malaise [Unknown]
  - Post procedural complication [Unknown]
  - Intestinal obstruction [Unknown]
  - Adhesion [Unknown]
